FAERS Safety Report 5191635-X (Version None)
Quarter: 2006Q4

REPORT INFORMATION
  Report Type: 
  Country: None (occurrence: None)
  Receive Date: 20061219
  Receipt Date: 20061207
  Transmission Date: 20070319
  Serious: Yes (Hospitalization, Other)
  Sender: FDA-Public Use
  Company Number: 2006147466

PATIENT
  Age: 43 Year
  Sex: Female

DRUGS (4)
  1. GABAPENTIN [Suspect]
     Indication: PAIN IN EXTREMITY
     Dosage: 600 MG (200  MG, 3 IN 1 D), ORAL
     Route: 048
     Dates: start: 20061118
  2. TEGRETOL [Suspect]
     Dosage: ORAL
     Route: 048
  3. METHYLCBAL (MECOBALAMIN) [Suspect]
     Dosage: ORAL
     Route: 048
  4. PREDNISOLONE [Suspect]

REACTIONS (2)
  - ASTHMA [None]
  - EYE PRURITUS [None]
